FAERS Safety Report 9015812 (Version 1)
Quarter: 2012Q4

REPORT INFORMATION
  Report Type: Spontaneous
  Country: US (occurrence: None)
  Receive Date: 20121231
  Receipt Date: 20121231
  Transmission Date: 20130627
  Serious: Yes (Other)
  Sender: FDA-Public Use
  Company Number: ACO_33495_2012

PATIENT
  Age: 62 Year
  Sex: Female

DRUGS (2)
  1. AMPYRA (DALFAMPRIDINE) TABLET [Suspect]
     Indication: MULTIPLE SCLEROSIS
     Route: 048
     Dates: end: 2012
  2. WELLBUTRIN (BUPROPION HYDROCHLORIDE) [Concomitant]

REACTIONS (1)
  - Convulsion [None]
